FAERS Safety Report 6255584-8 (Version None)
Quarter: 2009Q2

REPORT INFORMATION
  Report Type: 
  Country: None (occurrence: None)
  Receive Date: 20090630
  Receipt Date: 20090601
  Transmission Date: 20091009
  Serious: Yes (Hospitalization, Other)
  Sender: FDA-Public Use
  Company Number: JPI-P-006506

PATIENT
  Age: 69 Year
  Sex: Female

DRUGS (11)
  1. XYREM [Suspect]
     Indication: CATAPLEXY
     Dosage: 9 GM (4:5 GM,2 IN 1 D), ORAL
     Route: 048
  2. DEXEDRINE [Concomitant]
  3. FLUOXETINE HYDROCHLORIDE [Concomitant]
  4. ATENOLOL [Concomitant]
  5. ISOSORBIDE DINITRATE [Concomitant]
  6. NITROGLYCERIN [Concomitant]
  7. SIMVASTATIN [Concomitant]
  8. VALSARTAN [Concomitant]
  9. ACETYLSALICYLIC ACID SRT [Concomitant]
  10. LOPERAMIDE HYDROCHLORIDE [Concomitant]
  11. VITAMINS AND SUPPLEMENTS [Concomitant]

REACTIONS (11)
  - ABDOMINAL WALL INFECTION [None]
  - ABSCESS [None]
  - ANAEMIA [None]
  - BLOOD PRESSURE DECREASED [None]
  - CHEST PAIN [None]
  - DIARRHOEA [None]
  - DIZZINESS [None]
  - ENTEROCUTANEOUS FISTULA [None]
  - ESCHERICHIA URINARY TRACT INFECTION [None]
  - POOR QUALITY SLEEP [None]
  - POST PROCEDURAL INFECTION [None]
